FAERS Safety Report 6683768-3 (Version None)
Quarter: 2010Q2

REPORT INFORMATION
  Report Type: 
  Country: None (occurrence: None)
  Receive Date: 20100416
  Receipt Date: 20100406
  Transmission Date: 20101027
  Serious: No
  Sender: FDA-Public Use
  Company Number: US-BIOGENIDEC-2010BI011242

PATIENT
  Age: 44 Year
  Sex: Female

DRUGS (5)
  1. AVONEX [Suspect]
     Indication: MULTIPLE SCLEROSIS
     Route: 030
     Dates: start: 20100102
  2. OXYCONTIN [Concomitant]
     Indication: BACK PAIN
     Route: 048
     Dates: start: 20091127
  3. OXYCONTIN [Concomitant]
     Indication: ARTHRALGIA
     Route: 048
     Dates: start: 20091127
  4. NORCO [Concomitant]
     Indication: BACK PAIN
     Dates: start: 20091127
  5. NORCO [Concomitant]
     Indication: ARTHRALGIA
     Dates: start: 20091127

REACTIONS (3)
  - HOT FLUSH [None]
  - NASOPHARYNGITIS [None]
  - PARAESTHESIA [None]
